FAERS Safety Report 4961525-3 (Version None)
Quarter: 2006Q1

REPORT INFORMATION
  Report Type: 
  Country: None (occurrence: None)
  Receive Date: 20060329
  Receipt Date: 20060316
  Transmission Date: 20060701
  Serious: Yes (Hospitalization)
  Sender: FDA-Public Use
  Company Number: 2006038640

PATIENT
  Age: 76 Year
  Sex: Female

DRUGS (6)
  1. AROMASIN [Suspect]
     Indication: ILL-DEFINED DISORDER
     Dosage: ORAL
     Route: 048
     Dates: start: 20030801, end: 20031001
  2. TAMOXIFEN CITRATE [Suspect]
     Indication: ILL-DEFINED DISORDER
     Dosage: 20 MG, DAILY, ORAL
     Route: 048
     Dates: start: 20031001, end: 20040901
  3. EPREX [Suspect]
     Indication: ILL-DEFINED DISORDER
     Dosage: WEEKLY, INTRAVENOUS
     Route: 042
     Dates: start: 20050405, end: 20050927
  4. LYTOS (CLODRONATE DISODIUM) [Suspect]
     Indication: ILL-DEFINED DISORDER
     Dosage: ORAL
     Route: 048
     Dates: start: 20020501, end: 20030801
  5. ANASTROZOLE [Suspect]
     Indication: ILL-DEFINED DISORDER
     Dosage: DAILY, ORAL
     Route: 048
     Dates: start: 20020501, end: 20030801
  6. XELODA [Suspect]
     Indication: ILL-DEFINED DISORDER
     Dosage: 4000 MG (DAILY), ORAL
     Route: 048
     Dates: start: 20050105, end: 20050927

REACTIONS (6)
  - ACUTE LEUKAEMIA [None]
  - BACK PAIN [None]
  - HAEMOGLOBIN DECREASED [None]
  - METASTASES TO BONE [None]
  - OSTEOLYSIS [None]
  - PLATELET COUNT DECREASED [None]
